FAERS Safety Report 10494624 (Version 1)
Quarter: 2014Q3

REPORT INFORMATION
  Report Type: Spontaneous
  Country: US (occurrence: None)
  Receive Date: 20140815
  Receipt Date: 20140815
  Transmission Date: 20150326
  Serious: Yes (Hospitalization, Other)
  Sender: FDA-Public Use
  Company Number: ADR-2014-00221

PATIENT
  Age: 65 Year
  Sex: Female

DRUGS (3)
  1. BUPIVACAINE [Suspect]
     Active Substance: BUPIVACAINE
     Indication: MUSCLE SPASTICITY
     Dosage: UNK
  2. BACLOFEN 2,000 MCG/ML [Suspect]
     Active Substance: BACLOFEN
     Indication: MUSCLE SPASTICITY
  3. DILAUDID [Suspect]
     Active Substance: HYDROMORPHONE HYDROCHLORIDE

REACTIONS (1)
  - Unevaluable event [None]

NARRATIVE: CASE EVENT DATE: 20140202
